FAERS Safety Report 10253621 (Version 2)
Quarter: 2014Q3

REPORT INFORMATION
  Report Type: Spontaneous
  Country: FR (occurrence: FR)
  Receive Date: 20140623
  Receipt Date: 20140714
  Transmission Date: 20150326
  Serious: Yes (Hospitalization)
  Sender: FDA-Public Use
  Company Number: PHHY2014FR076214

PATIENT
  Age: 46 Year
  Sex: Female

DRUGS (4)
  1. VOLTARENE [Suspect]
     Active Substance: DICLOFENAC SODIUM
     Dosage: 10 DF, QD
     Route: 048
     Dates: start: 20140425, end: 20140425
  2. RISPERDAL [Suspect]
     Active Substance: RISPERIDONE
     Dosage: 10 DF (1MG) QD
     Route: 048
     Dates: start: 20140425, end: 20140425
  3. VOLTARENE [Suspect]
     Active Substance: DICLOFENAC SODIUM
     Dosage: 1 DF, QD
  4. TEMERIT DUO [Suspect]
     Active Substance: HYDROCHLOROTHIAZIDE\NEBIVOLOL HYDROCHLORIDE
     Dosage: 10 DF, QD
     Route: 048
     Dates: start: 20140425, end: 20140425

REACTIONS (3)
  - Coma [Recovered/Resolved]
  - Hypotension [Recovered/Resolved]
  - Bradycardia [Recovered/Resolved]

NARRATIVE: CASE EVENT DATE: 20140425
